FAERS Safety Report 25410870 (Version 2)
Quarter: 2025Q4

REPORT INFORMATION
  Report Type: Spontaneous
  Country: EU (occurrence: EU)
  Receive Date: 20250609
  Receipt Date: 20251020
  Transmission Date: 20260118
  Serious: Yes (Disabling, Other)
  Sender: ABBVIE
  Company Number: EU-SANDOZ-SDZ2025FR037001

PATIENT
  Age: 47 Year
  Sex: Female
  Weight: 60 kg

DRUGS (2)
  1. HUMIRA [Suspect]
     Active Substance: ADALIMUMAB
     Indication: Product used for unknown indication
     Route: 058
     Dates: start: 2024
  2. HYRIMOZ [Suspect]
     Active Substance: ADALIMUMAB-ADAZ
     Indication: Colitis ulcerative
     Route: 058
     Dates: start: 20250521

REACTIONS (2)
  - Diarrhoea [Recovered/Resolved]
  - Seizure [Unknown]

NARRATIVE: CASE EVENT DATE: 20250501
